FAERS Safety Report 24936170 (Version 1)
Quarter: 2025Q1

REPORT INFORMATION
  Report Type: Spontaneous
  Country: PL (occurrence: PL)
  Receive Date: 20250206
  Receipt Date: 20250206
  Transmission Date: 20250409
  Serious: Yes (Hospitalization)
  Sender: ACCORD
  Company Number: PL-EMA-DD-20241015-7482715-110403

PATIENT
  Age: 26 Year
  Sex: Female

DRUGS (20)
  1. SERTRALINE [Interacting]
     Active Substance: SERTRALINE HYDROCHLORIDE
     Indication: Depression
  2. HERBALS [Interacting]
     Active Substance: HERBALS
     Indication: Persistent genital arousal disorder
  3. ALPRAZOLAM [Suspect]
     Active Substance: ALPRAZOLAM
     Indication: Persistent genital arousal disorder
     Dosage: 3X0.5 MG
  4. CIPROFLOXACIN [Suspect]
     Active Substance: CIPROFLOXACIN
     Indication: Persistent genital arousal disorder
  5. CLOTRIMAZOLE [Suspect]
     Active Substance: CLOTRIMAZOLE
     Indication: Persistent genital arousal disorder
  6. CETIRIZINE HYDROCHLORIDE [Suspect]
     Active Substance: CETIRIZINE HYDROCHLORIDE
     Indication: Persistent genital arousal disorder
  7. CRANBERRY [Suspect]
     Active Substance: CRANBERRY
     Indication: Urogenital disorder
  8. FLUCONAZOLE [Suspect]
     Active Substance: FLUCONAZOLE
     Indication: Persistent genital arousal disorder
  9. FURAZOLIDONE [Suspect]
     Active Substance: FURAZOLIDONE
     Indication: Product used for unknown indication
  10. GENTAMICIN [Suspect]
     Active Substance: GENTAMICIN
     Indication: Product used for unknown indication
  11. HYDROXYZINE [Suspect]
     Active Substance: HYDROXYZINE HYDROCHLORIDE
     Indication: Persistent genital arousal disorder
  12. IBUPROFEN [Suspect]
     Active Substance: IBUPROFEN
     Indication: Persistent genital arousal disorder
  13. OAK BARK EXTRACT [Suspect]
     Active Substance: OAK BARK EXTRACT
     Indication: Urogenital disorder
  14. ACETAMINOPHEN AND CODEINE [Suspect]
     Active Substance: ACETAMINOPHEN\CODEINE PHOSPHATE
     Indication: Persistent genital arousal disorder
  15. ACETAMINOPHEN [Suspect]
     Active Substance: ACETAMINOPHEN
     Indication: Persistent genital arousal disorder
  16. NATAMYCIN [Suspect]
     Active Substance: NATAMYCIN
     Indication: Persistent genital arousal disorder
  17. TIANEPTINE SODIUM [Suspect]
     Active Substance: TIANEPTINE SODIUM
     Indication: Persistent genital arousal disorder
  18. SERTRALINE [Interacting]
     Active Substance: SERTRALINE HYDROCHLORIDE
     Indication: Depression
  19. HERBALS [Interacting]
     Active Substance: HERBALS
     Indication: Depression
  20. ALPRAZOLAM [Suspect]
     Active Substance: ALPRAZOLAM
     Indication: Anxiety

REACTIONS (12)
  - Drug interaction [Unknown]
  - Pain [Recovered/Resolved]
  - Dysaesthesia [Recovered/Resolved]
  - Burning sensation [Recovered/Resolved]
  - Anxiety [Recovered/Resolved]
  - Disturbance in sexual arousal [Recovered/Resolved]
  - Sexual dysfunction [Recovered/Resolved]
  - Female reproductive tract disorder [Recovered/Resolved]
  - Perineal pain [Recovered/Resolved]
  - Genital pain [Recovered/Resolved]
  - Condition aggravated [Recovered/Resolved]
  - Persistent genital arousal disorder [Recovered/Resolved]
